FAERS Safety Report 12775089 (Version 1)
Quarter: 2016Q3

REPORT INFORMATION
  Report Type: Spontaneous
  Country: US (occurrence: US)
  Receive Date: 20160923
  Receipt Date: 20160923
  Transmission Date: 20161109
  Serious: Yes (Other)
  Sender: FDA-Public Use
  Company Number: US-PFIZER INC-3039930

PATIENT
  Age: 68 Year
  Sex: Male
  Weight: 94.35 kg

DRUGS (3)
  1. GEMCITABINE HYDROCHLORIDE. [Suspect]
     Active Substance: GEMCITABINE HYDROCHLORIDE
     Indication: BLADDER CANCER
     Dosage: 26 MG, DAY 1AND 8, THEN OFF ONEWEEK.
     Route: 042
     Dates: start: 20150209, end: 20150601
  2. CISPLATIN. [Concomitant]
     Active Substance: CISPLATIN
     Indication: BLADDER CANCER
  3. CARBOPLATIN. [Suspect]
     Active Substance: CARBOPLATIN
     Indication: BLADDER CANCER
     Dosage: 400-530 MG.
     Route: 042
     Dates: start: 20150209, end: 20150601

REACTIONS (2)
  - Eye colour change [Not Recovered/Not Resolved]
  - Full blood count decreased [Not Recovered/Not Resolved]

NARRATIVE: CASE EVENT DATE: 20150101
